FAERS Safety Report 13537144 (Version 1)
Quarter: 2017Q2

REPORT INFORMATION
  Report Type: Spontaneous
  Country: GB (occurrence: GB)
  Receive Date: 20170511
  Receipt Date: 20170511
  Transmission Date: 20170830
  Serious: Yes (Hospitalization)
  Sender: FDA-Public Use
  Company Number: GB-TEVA-766135ACC

PATIENT
  Age: 61 Year
  Sex: Male

DRUGS (6)
  1. OMEPRAZOLE. [Suspect]
     Active Substance: OMEPRAZOLE
     Route: 048
  2. THIAMINE. [Concomitant]
     Active Substance: THIAMINE
  3. LATANOPROST. [Concomitant]
     Active Substance: LATANOPROST
  4. PABRINEX [Concomitant]
     Indication: ALCOHOL ABUSE
  5. FUROSEMIDE. [Suspect]
     Active Substance: FUROSEMIDE
     Indication: OEDEMA
     Route: 048
  6. CO-DYDRAMOL [Concomitant]
     Active Substance: ACETAMINOPHEN\DIHYDROCODEINE

REACTIONS (8)
  - Hyponatraemia [Not Recovered/Not Resolved]
  - Malaise [Unknown]
  - Vomiting [Unknown]
  - Abnormal loss of weight [Unknown]
  - Nausea [Unknown]
  - Tachycardia [Unknown]
  - Hypomagnesaemia [Not Recovered/Not Resolved]
  - Hypokalaemia [Not Recovered/Not Resolved]

NARRATIVE: CASE EVENT DATE: 20170420
